FAERS Safety Report 15453029 (Version 2)
Quarter: 2018Q4

REPORT INFORMATION
  Report Type: Spontaneous
  Country: FR (occurrence: FR)
  Receive Date: 20181001
  Receipt Date: 20181207
  Transmission Date: 20190204
  Serious: Yes (Other)
  Sender: FDA-Public Use
  Company Number: FR-TEVA-2018-FR-960183

PATIENT
  Age: 89 Year
  Sex: Male

DRUGS (9)
  1. BRILIQUE [Suspect]
     Active Substance: TICAGRELOR
     Indication: ACUTE CORONARY SYNDROME
     Dosage: 180 MILLIGRAM DAILY; 90 MG MORNING AND EVENING
     Route: 048
     Dates: start: 20180521, end: 20180521
  2. PREDNISONE. [Concomitant]
     Active Substance: PREDNISONE
     Indication: PROSTATE CANCER
     Dosage: 10 MILLIGRAM DAILY; 1 TABLET OF 5 MG MORNING AND NOON
     Route: 048
  3. RAMIPRIL. [Suspect]
     Active Substance: RAMIPRIL
     Indication: ACUTE CORONARY SYNDROME
     Dosage: 1.25 MILLIGRAM DAILY; 1.25 MG, QD
     Route: 048
     Dates: start: 20180521
  4. ZYTIGA [Concomitant]
     Active Substance: ABIRATERONE ACETATE
     Indication: PROSTATE CANCER
     Dosage: 1000 MILLIGRAM DAILY; 4 TABLETS FROM 250 MG TO 16 HOURS
     Route: 048
  5. BISOPROLOL [Suspect]
     Active Substance: BISOPROLOL
     Indication: ACUTE CORONARY SYNDROME
     Dosage: 2.5 MILLIGRAM DAILY;
     Route: 048
     Dates: start: 20180521
  6. KARDEGIC [Suspect]
     Active Substance: ASPIRIN DL-LYSINE
     Indication: ACUTE CORONARY SYNDROME
     Dosage: 75 MILLIGRAM DAILY; 75 MG IN THE MORNING
     Route: 048
     Dates: start: 20180521
  7. ATORVASTATIN ARROW [Suspect]
     Active Substance: ATORVASTATIN CALCIUM
     Indication: ACUTE CORONARY SYNDROME
     Dosage: 80 MG AT NIGHT
     Route: 048
     Dates: start: 20180521
  8. TRIATEC                            /00885601/ [Suspect]
     Active Substance: RAMIPRIL
     Indication: ACUTE CORONARY SYNDROME
     Dosage: 1.25 MILLIGRAM DAILY; 1.25 MG IN THE MORNING
     Route: 048
     Dates: start: 20180521
  9. BISOCE [Suspect]
     Active Substance: BISOPROLOL
     Indication: ACUTE CORONARY SYNDROME
     Dosage: 1.25 MILLIGRAM DAILY; 1.25 MG IN THE MORNING AND IN THE AFTERNOON
     Route: 048
     Dates: start: 20180521

REACTIONS (1)
  - Bradycardia [Recovered/Resolved]

NARRATIVE: CASE EVENT DATE: 20180521
